FAERS Safety Report 25076041 (Version 3)
Quarter: 2025Q3

REPORT INFORMATION
  Report Type: Spontaneous
  Country: EU (occurrence: EU)
  Receive Date: 20250313
  Receipt Date: 20250810
  Transmission Date: 20251021
  Serious: Yes (Other)
  Sender: ALEXION PHARMACEUTICALS
  Company Number: EU-AstraZeneca-CH-00824578A

PATIENT
  Age: 48 Year
  Sex: Male
  Weight: 86 kg

DRUGS (7)
  1. DAPAGLIFLOZIN [Suspect]
     Active Substance: DAPAGLIFLOZIN
     Indication: Cardiac failure congestive
     Dosage: 10 MILLIGRAM, QD
     Dates: start: 20220516
  2. ASPIRIN\MAGNESIUM HYDROXIDE [Concomitant]
     Active Substance: ASPIRIN\MAGNESIUM HYDROXIDE
     Dosage: 75 MILLIGRAM, QD
     Route: 065
  3. Atorvastatin +Pharma [Concomitant]
     Dosage: 80 MILLIGRAM, QD
     Route: 065
  4. Ramipril + amlodipina krka [Concomitant]
     Route: 065
  5. METOPROLOL [Concomitant]
     Active Substance: METOPROLOL
     Route: 065
  6. SPIRONOLACTONE [Concomitant]
     Active Substance: SPIRONOLACTONE
     Dosage: 50 MILLIGRAM, QD
     Route: 065
  7. FUROSEMIDE SODIUM [Concomitant]
     Active Substance: FUROSEMIDE SODIUM
     Dosage: 20 MILLIGRAM, QD
     Route: 065

REACTIONS (2)
  - Ventricular arrhythmia [Unknown]
  - Ejection fraction decreased [Unknown]

NARRATIVE: CASE EVENT DATE: 20230208
